FAERS Safety Report 4771641-7 (Version None)
Quarter: 2005Q3

REPORT INFORMATION
  Report Type: 
  Country: None (occurrence: None)
  Receive Date: 20050915
  Receipt Date: 20050831
  Transmission Date: 20060218
  Serious: Yes (Hospitalization, Other)
  Sender: FDA-Public Use
  Company Number: 2005S1003412

PATIENT
  Age: 74 Year
  Sex: Female
  Weight: 71.6683 kg

DRUGS (3)
  1. FENTANYL [Suspect]
     Indication: HEADACHE
     Dosage: 75 MCG/HR; Q3D; TDER
     Route: 062
     Dates: start: 20050414, end: 20050506
  2. ALPRAZOLAM [Concomitant]
  3. PARACETAMOL/HYDROCODONE BITARTRATE [Concomitant]

REACTIONS (11)
  - ASTHENIA [None]
  - CONCUSSION [None]
  - DIFFICULTY IN WALKING [None]
  - DRUG EFFECT DECREASED [None]
  - FATIGUE [None]
  - HEAD INJURY [None]
  - INCOHERENT [None]
  - LOSS OF CONSCIOUSNESS [None]
  - OVERDOSE [None]
  - ROAD TRAFFIC ACCIDENT [None]
  - SPEECH DISORDER [None]
